FAERS Safety Report 4726932-2 (Version None)
Quarter: 2005Q3

REPORT INFORMATION
  Report Type: 
  Country: None (occurrence: None)
  Receive Date: 20050725
  Receipt Date: 20050725
  Transmission Date: 20060218
  Serious: Yes (Other)
  Sender: FDA-Public Use
  Company Number: None

PATIENT
  Age: 57 Year
  Sex: Female
  Weight: 63.5036 kg

DRUGS (1)
  1. PRILOSEC [Suspect]
     Dosage: 20MG    DAILY   ORAL
     Route: 048
     Dates: start: 20050602, end: 20050604

REACTIONS (1)
  - DIARRHOEA [None]
